FAERS Safety Report 7626315-1 (Version None)
Quarter: 2011Q3

REPORT INFORMATION
  Report Type: 
  Country: None (occurrence: None)
  Receive Date: 20110721
  Receipt Date: 20110715
  Transmission Date: 20111222
  Serious: Yes (Death, Hospitalization, Other)
  Sender: FDA-Public Use
  Company Number: PHHY2010DE66814

PATIENT
  Sex: Male
  Weight: 74 kg

DRUGS (2)
  1. TASIGNA [Suspect]
     Indication: CHRONIC MYELOID LEUKAEMIA
     Dosage: 800 MG, DAILY
     Route: 048
     Dates: start: 20100809
  2. RAMIPRIL [Concomitant]
     Dates: start: 20020101

REACTIONS (16)
  - HEPATIC CIRRHOSIS [None]
  - ACUTE MYOCARDIAL INFARCTION [None]
  - HYPERKALAEMIA [None]
  - COUGH [None]
  - ASCITES [None]
  - PLEURAL EFFUSION [None]
  - RENAL FAILURE ACUTE [None]
  - RENAL IMPAIRMENT [None]
  - HYPOTENSION [None]
  - VASCULAR RUPTURE [None]
  - PERITONITIS BACTERIAL [None]
  - PNEUMONIA [None]
  - CARDIAC FAILURE [None]
  - DYSPNOEA [None]
  - SOMNOLENCE [None]
  - BRONCHITIS [None]
